FAERS Safety Report 13675373 (Version 3)
Quarter: 2024Q4

REPORT INFORMATION
  Report Type: Spontaneous
  Country: FR (occurrence: FR)
  Receive Date: 20170621
  Receipt Date: 20241206
  Transmission Date: 20250114
  Serious: Yes (Hospitalization, Other)
  Sender: RANBAXY
  Company Number: FR-SUN PHARMACEUTICAL INDUSTRIES LTD-2017R1-135568

PATIENT
  Age: 69 Year
  Sex: Male

DRUGS (17)
  1. PREDNISONE [Suspect]
     Active Substance: PREDNISONE
     Indication: Kidney transplant rejection
     Dosage: 7.5 MG, DAILY (MAINTAINNANCE TREATMENT)
     Route: 065
  2. PREDNISONE [Suspect]
     Active Substance: PREDNISONE
     Indication: Immunosuppressant drug therapy
     Dosage: DAILY (1 MG/KG PER DAY)
     Route: 065
  3. PREDNISONE [Suspect]
     Active Substance: PREDNISONE
     Indication: Immunosuppression
  4. MYCOPHENOLIC ACID [Suspect]
     Active Substance: MYCOPHENOLIC ACID
     Indication: Kidney transplant rejection
     Dosage: 750 MG, BID
     Route: 065
  5. MYCOPHENOLIC ACID [Suspect]
     Active Substance: MYCOPHENOLIC ACID
     Indication: Immunosuppression
     Dosage: 500 MG, BID
     Route: 065
  6. METHYLPREDNISOLONE [Suspect]
     Active Substance: METHYLPREDNISOLONE
     Indication: Kidney transplant rejection
     Dosage: 500 MG, DAILY (500 MG/D FROM D1 TO D3)
     Route: 065
  7. METHYLPREDNISOLONE [Suspect]
     Active Substance: METHYLPREDNISOLONE
     Indication: Immunosuppression
  8. METHYLPREDNISOLONE [Suspect]
     Active Substance: METHYLPREDNISOLONE
     Indication: Immunosuppressant drug therapy
  9. TACROLIMUS [Suspect]
     Active Substance: TACROLIMUS
     Indication: Kidney transplant rejection
     Dosage: UNK
     Route: 065
  10. TACROLIMUS [Suspect]
     Active Substance: TACROLIMUS
     Indication: Immunosuppression
  11. CYCLOSPORINE [Suspect]
     Active Substance: CYCLOSPORINE
     Indication: Kidney transplant rejection
     Dosage: 50 MG, BID
     Route: 065
  12. CYCLOSPORINE [Suspect]
     Active Substance: CYCLOSPORINE
     Indication: Immunosuppression
  13. NEORAL [Suspect]
     Active Substance: CYCLOSPORINE
     Indication: Kidney transplant rejection
     Dosage: 60 MG, BID
     Route: 065
  14. RITUXIMAB [Suspect]
     Active Substance: RITUXIMAB
     Indication: Kidney transplant rejection
     Dosage: UNK
     Route: 065
     Dates: start: 200808
  15. RITUXIMAB [Suspect]
     Active Substance: RITUXIMAB
     Indication: Immunosuppression
  16. SIROLIMUS [Suspect]
     Active Substance: SIROLIMUS
     Indication: Kidney transplant rejection
     Dosage: UNK
     Route: 065
     Dates: start: 200808
  17. HUMAN IMMUNOGLOBULIN G [Suspect]
     Active Substance: HUMAN IMMUNOGLOBULIN G
     Indication: Immunosuppression
     Dosage: UNK
     Route: 042

REACTIONS (11)
  - Pneumonia streptococcal [Unknown]
  - Tularaemia [Recovered/Resolved]
  - Chills [Unknown]
  - Pyrexia [Unknown]
  - Duodenal ulcer [Unknown]
  - Renal impairment [Unknown]
  - Pneumocystis jirovecii pneumonia [Unknown]
  - Transaminases increased [Unknown]
  - Cytomegalovirus infection [Unknown]
  - Hepatitis B [Unknown]
  - Sputum purulent [Unknown]

NARRATIVE: CASE EVENT DATE: 20100926
